FAERS Safety Report 10142800 (Version 1)
Quarter: 2014Q2

REPORT INFORMATION
  Report Type: Spontaneous
  Country: GB (occurrence: None)
  Receive Date: 20140428
  Receipt Date: 20140428
  Transmission Date: 20141212
  Serious: Yes (Other)
  Sender: FDA-Public Use
  Company Number: AUR-APL-2014-04819

PATIENT
  Age: 15 Year
  Sex: Female

DRUGS (3)
  1. FLUOXETINE (FLUOXETINE) [Suspect]
     Indication: PRODUCT USED FOR UNKNOWN INDICATION
     Route: 048
     Dates: end: 201402
  2. 5-HYDROXYTRYPTOPHAN (OXITRIPTAN) [Concomitant]
  3. MELATONIN (MELATONIN) [Concomitant]

REACTIONS (5)
  - Withdrawal syndrome [None]
  - Mood swings [None]
  - Crying [None]
  - Hyperventilation [None]
  - Anger [None]
